FAERS Safety Report 7217390-7 (Version None)
Quarter: 2010Q4

REPORT INFORMATION
  Report Type: 
  Country: None (occurrence: None)
  Receive Date: 20101230
  Receipt Date: 20101210
  Transmission Date: 20110411
  Serious: No
  Sender: FDA-Public Use
  Company Number: 2010-01042

PATIENT
  Age: 68 Year
  Sex: Female
  Weight: 55.7924 kg

DRUGS (3)
  1. ZICAM COLD REMEDY ORAL MIST [Suspect]
     Dosage: Q 3 HOURS X 3 DAYS
     Dates: start: 20101208, end: 20101210
  2. ATENOLOL [Concomitant]
  3. ^SOMETHING FOR HIGH CHOLESTEROL^ [Concomitant]

REACTIONS (1)
  - AGEUSIA [None]
